FAERS Safety Report 10263038 (Version 2)
Quarter: 2014Q2

REPORT INFORMATION
  Report Type: Report from Study
  Country: US (occurrence: US)
  Receive Date: 20140626
  Receipt Date: 20140626
  Transmission Date: 20141212
  Serious: Yes (Other)
  Sender: FDA-Public Use
  Company Number: US-MYLANLABS-2013S1027722

PATIENT
  Age: 66 Year
  Sex: Female
  Weight: 57.61 kg

DRUGS (13)
  1. CLOZAPINE TABLETS [Suspect]
     Indication: DELUSIONAL DISORDER, UNSPECIFIED TYPE
     Route: 048
     Dates: start: 201310, end: 20140415
  2. CLOZAPINE TABLETS [Suspect]
     Indication: PSYCHOTIC DISORDER
     Route: 048
     Dates: start: 201310, end: 20140415
  3. MIRTAZAPINE [Concomitant]
  4. CARAFATE [Concomitant]
  5. XANAX [Concomitant]
  6. PRILOSEC [Concomitant]
  7. DITROPAN [Concomitant]
  8. NEUPRO [Concomitant]
  9. FOLBIC [Concomitant]
  10. LEVOTHYROXINE [Concomitant]
  11. FUROSEMIDE [Concomitant]
  12. AMANTADINE [Concomitant]
  13. DICYCLOMINE [Concomitant]

REACTIONS (2)
  - Granulocytopenia [Not Recovered/Not Resolved]
  - Leukopenia [Recovered/Resolved]
